FAERS Safety Report 7028322-9 (Version None)
Quarter: 2010Q4

REPORT INFORMATION
  Report Type: 
  Country: None (occurrence: None)
  Receive Date: 20101001
  Receipt Date: 20101001
  Transmission Date: 20110411
  Serious: Yes (Hospitalization)
  Sender: FDA-Public Use
  Company Number: None

PATIENT
  Age: 87 Year
  Sex: Male

DRUGS (1)
  1. RISPERIDONE [Suspect]
     Dates: start: 20100811, end: 20100811

REACTIONS (1)
  - MENTAL STATUS CHANGES [None]
